FAERS Safety Report 8510406-7 (Version None)
Quarter: 2012Q3

REPORT INFORMATION
  Report Type: 
  Country: None (occurrence: None)
  Receive Date: 20120713
  Receipt Date: 20120619
  Transmission Date: 20120928
  Serious: Yes (Other)
  Sender: FDA-Public Use
  Company Number: PHHY2012DE049596

PATIENT
  Age: 51 Year
  Sex: Female
  Weight: 68 kg

DRUGS (2)
  1. SANDOSTATIN LAR [Suspect]
     Indication: CARCINOID SYNDROME
     Dosage: 30 MG EVERY 4 WEEKS
     Route: 030
     Dates: start: 20120601
  2. Y-DOTATATE [Suspect]
     Indication: CARCINOID SYNDROME
     Dosage: 3.76 BQ, UNK
     Route: 042
     Dates: start: 20120529

REACTIONS (3)
  - INJECTION SITE ERYTHEMA [None]
  - INJECTION SITE HAEMATOMA [None]
  - THROMBOCYTOPENIA [None]
